FAERS Safety Report 7335058-3 (Version None)
Quarter: 2011Q1

REPORT INFORMATION
  Report Type: 
  Country: None (occurrence: None)
  Receive Date: 20110224
  Receipt Date: 20100913
  Transmission Date: 20110831
  Serious: Yes (Other)
  Sender: FDA-Public Use
  Company Number: 2010BH023179

PATIENT
  Age: 1 Day
  Sex: Male

DRUGS (2)
  1. DEXTROSE 10% IN PLASTIC CONTAINER [Suspect]
     Indication: BLOOD GLUCOSE DECREASED
     Dates: start: 20100901
  2. DEXTROSE 10% IN PLASTIC CONTAINER [Suspect]
     Indication: BLOOD GLUCOSE DECREASED
     Dates: start: 20100907, end: 20100907

REACTIONS (1)
  - BLOOD GLUCOSE INCREASED [None]
